FAERS Safety Report 22152837 (Version 1)
Quarter: 2023Q1

REPORT INFORMATION
  Report Type: Report from Study
  Country: US (occurrence: US)
  Receive Date: 20230329
  Receipt Date: 20230329
  Transmission Date: 20230418
  Serious: Yes (Hospitalization)
  Sender: FDA-Public Use
  Company Number: US-002147023-NVSC2023US067392

PATIENT
  Age: 48 Year
  Sex: Female
  Weight: 54.43 kg

DRUGS (3)
  1. METHOTREXATE [Suspect]
     Active Substance: METHOTREXATE
     Indication: Psoriasis
     Dosage: UNK
     Route: 065
  2. BUSPIRONE [Suspect]
     Active Substance: BUSPIRONE HYDROCHLORIDE
     Indication: Psoriasis
     Dosage: UNK
     Route: 065
  3. OMEPRAZOLE [Suspect]
     Active Substance: OMEPRAZOLE
     Indication: Psoriasis
     Dosage: UNK
     Route: 065

REACTIONS (9)
  - COVID-19 [Unknown]
  - Staphylococcal infection [Unknown]
  - Infection [Unknown]
  - Pneumonia [Unknown]
  - Alopecia [Unknown]
  - Skin reaction [Unknown]
  - Condition aggravated [Unknown]
  - Swelling [Unknown]
  - Treatment failure [Unknown]

NARRATIVE: CASE EVENT DATE: 20230207
